FAERS Safety Report 10689906 (Version 2)
Quarter: 2015Q1

REPORT INFORMATION
  Report Type: Spontaneous
  Country: US (occurrence: US)
  Receive Date: 20150105
  Receipt Date: 20150115
  Transmission Date: 20150720
  Serious: Yes (Hospitalization)
  Sender: FDA-Public Use
  Company Number: US-ROCHE-1516421

PATIENT

DRUGS (1)
  1. AVASTIN [Suspect]
     Active Substance: BEVACIZUMAB
     Indication: PRODUCT USED FOR UNKNOWN INDICATION
     Route: 065

REACTIONS (10)
  - Dyspnoea exertional [Unknown]
  - Vomiting [Unknown]
  - Mucosal inflammation [Unknown]
  - Fatigue [Unknown]
  - Rhinorrhoea [Unknown]
  - Asthenia [Unknown]
  - Nausea [Unknown]
  - Drug intolerance [Unknown]
  - Diarrhoea [Unknown]
  - Oropharyngeal pain [Unknown]
